FAERS Safety Report 8385333 (Version 5)
Quarter: 2012Q4

REPORT INFORMATION
  Report Type: 
  Country: US (occurrence: US)
  Receive Date: 20120202
  Receipt Date: 20120921
  Transmission Date: 20130627
  Serious: Yes (Other)
  Sender: FDA-Public Use
  Company Number: US-ROCHE-1035284

PATIENT
  Age: 24 Year
  Sex: Female

DRUGS (3)
  1. ACCUTANE [Suspect]
     Indication: PRODUCT USED FOR UNKNOWN INDICATION
     Route: 065
     Dates: start: 19980106, end: 19990417
  2. ACCUTANE [Suspect]
     Route: 065
     Dates: start: 19990921
  3. YAZ [Concomitant]

REACTIONS (10)
  - Inflammatory bowel disease [Unknown]
  - Anxiety [Unknown]
  - Colitis ulcerative [Unknown]
  - Crohn^s disease [Unknown]
  - Anal fistula [Unknown]
  - Large intestine polyp [Unknown]
  - Anal abscess [Unknown]
  - Anal fissure [Unknown]
  - Rectal abscess [Unknown]
  - Irritable bowel syndrome [Unknown]
